FAERS Safety Report 24137368 (Version 2)
Quarter: 2024Q3

REPORT INFORMATION
  Report Type: Spontaneous
  Country: US (occurrence: US)
  Receive Date: 20240725
  Receipt Date: 20240814
  Transmission Date: 20241016
  Serious: No
  Sender: ROCHE
  Company Number: US-ROCHE-3571604

PATIENT
  Sex: Female

DRUGS (1)
  1. ACTEMRA [Suspect]
     Active Substance: TOCILIZUMAB
     Indication: Rheumatoid arthritis
     Dosage: STRENGTH: 162 MG/0.9 M, DRUG STILL BEING ADMINISTERED.
     Route: 058
     Dates: start: 202403

REACTIONS (2)
  - Upper respiratory tract infection [Unknown]
  - Rheumatoid arthritis [Unknown]
